FAERS Safety Report 18096659 (Version 1)
Quarter: 2020Q3

REPORT INFORMATION
  Report Type: Spontaneous
  Country: US (occurrence: US)
  Receive Date: 20200730
  Receipt Date: 20200730
  Transmission Date: 20201103
  Serious: No
  Sender: FDA-Public Use
  Company Number: None

PATIENT

DRUGS (2)
  1. LITHIUM. [Suspect]
     Active Substance: LITHIUM
  2. RISPERIDONE. [Suspect]
     Active Substance: RISPERIDONE
     Route: 048
     Dates: start: 20200504, end: 20200511

REACTIONS (10)
  - Cogwheel rigidity [None]
  - Hypertonia [None]
  - Muscle twitching [None]
  - Somnolence [None]
  - Extrapyramidal disorder [None]
  - Tremor [None]
  - Salivary hypersecretion [None]
  - Reduced facial expression [None]
  - Toxicity to various agents [None]
  - Drug interaction [None]

NARRATIVE: CASE EVENT DATE: 20200504
